FAERS Safety Report 20790925 (Version 2)
Quarter: 2022Q2

REPORT INFORMATION
  Report Type: Spontaneous
  Country: KR (occurrence: KR)
  Receive Date: 20220505
  Receipt Date: 20220516
  Transmission Date: 20220721
  Serious: Yes (Hospitalization, Other)
  Sender: FDA-Public Use
  Company Number: KR-SA-2022SA158365

PATIENT
  Age: 73 Year
  Sex: Male

DRUGS (2)
  1. IRBESARTAN [Suspect]
     Active Substance: IRBESARTAN
     Indication: Hypertension
     Dosage: 20 MG, QD
  2. VALSARTAN [Suspect]
     Active Substance: VALSARTAN
     Indication: Hypertension
     Dosage: 160 MG, QD

REACTIONS (11)
  - Sprue-like enteropathy [Recovering/Resolving]
  - Gastric mucosal hypertrophy [Recovering/Resolving]
  - Diarrhoea [Recovered/Resolved]
  - Weight decreased [Recovered/Resolved]
  - Abdominal pain [Recovering/Resolving]
  - Anaemia [Recovering/Resolving]
  - Hypoalbuminaemia [Recovered/Resolved]
  - Gastrointestinal wall thickening [Recovering/Resolving]
  - Oedema mucosal [Recovering/Resolving]
  - Eosinophilia [Recovering/Resolving]
  - Tissue infiltration [Recovering/Resolving]
